FAERS Safety Report 5711240-3 (Version None)
Quarter: 2008Q2

REPORT INFORMATION
  Report Type: 
  Country: None (occurrence: None)
  Receive Date: 20080421
  Receipt Date: 20080407
  Transmission Date: 20081010
  Serious: Yes (Other)
  Sender: FDA-Public Use
  Company Number: FR-ROCHE-545144

PATIENT
  Sex: Female
  Weight: 58 kg

DRUGS (4)
  1. BONIVA [Suspect]
     Indication: OSTEOPOROSIS
     Dosage: 150MG/MO
     Route: 048
     Dates: start: 20070501, end: 20070901
  2. FOSAVANCE [Suspect]
     Indication: DRUG USE FOR UNKNOWN INDICATION
     Dosage: FOSAVANCE 70.
     Route: 065
     Dates: start: 20061128, end: 20070501
  3. FOSAVANCE [Suspect]
     Dosage: FOSAVANCE 70.
     Route: 065
     Dates: start: 20061128, end: 20070501
  4. RYTHMODAN [Concomitant]
     Dosage: DOSAGE REGIMEN: 250.
     Route: 048
     Dates: start: 20000101

REACTIONS (1)
  - TOOTH ABSCESS [None]
